FAERS Safety Report 6443315-8 (Version None)
Quarter: 2009Q4

REPORT INFORMATION
  Report Type: 
  Country: None (occurrence: None)
  Receive Date: 20091113
  Receipt Date: 20091104
  Transmission Date: 20100525
  Serious: Yes (Hospitalization)
  Sender: FDA-Public Use
  Company Number: 2009AC000367

PATIENT
  Age: 50 Year
  Sex: Female

DRUGS (12)
  1. DIGOXIN [Suspect]
     Dosage: 0.25 MG QD PO
     Route: 048
     Dates: start: 20081101
  2. LASIX [Concomitant]
  3. CIPRO [Concomitant]
  4. COZAAR [Concomitant]
  5. ESTRACE [Concomitant]
  6. COREG [Concomitant]
  7. LIPITOR [Concomitant]
  8. CARVEDILOL [Concomitant]
  9. PLAVIX [Concomitant]
  10. LEVOTHYROXINE [Concomitant]
  11. ALDACTONE [Concomitant]
  12. ESTRATEST [Concomitant]

REACTIONS (12)
  - CARDIAC ENZYMES INCREASED [None]
  - CHEST PAIN [None]
  - CONGESTIVE CARDIOMYOPATHY [None]
  - CORONARY ARTERY DISEASE [None]
  - DYSLIPIDAEMIA [None]
  - DYSPNOEA [None]
  - HYPERLIPIDAEMIA [None]
  - LARYNGITIS [None]
  - MYOCARDIAL ISCHAEMIA [None]
  - OBESITY [None]
  - TRACHEITIS [None]
  - UPPER RESPIRATORY TRACT INFECTION [None]
